FAERS Safety Report 17057903 (Version 1)
Quarter: 2019Q4

REPORT INFORMATION
  Report Type: Report from Study
  Country: TW (occurrence: TW)
  Receive Date: 20191121
  Receipt Date: 20191121
  Transmission Date: 20200122
  Serious: Yes (Hospitalization, Other)
  Sender: FDA-Public Use
  Company Number: TW-JNJFOC-20191110826

PATIENT
  Age: 79 Year
  Sex: Male

DRUGS (1)
  1. SIMPONI [Suspect]
     Active Substance: GOLIMUMAB
     Indication: PSORIATIC ARTHROPATHY
     Route: 058
     Dates: start: 20140106, end: 20191009

REACTIONS (11)
  - Prostatomegaly [Unknown]
  - Anaemia [Unknown]
  - Lung neoplasm [Unknown]
  - Arterial haemorrhage [Unknown]
  - Nephrolithiasis [Unknown]
  - Hyperlipidaemia [Unknown]
  - Prostatic specific antigen increased [Unknown]
  - Oedema peripheral [Unknown]
  - Psoriatic arthropathy [Unknown]
  - Malignant neoplasm of pleura [Unknown]
  - Infective aneurysm [Unknown]

NARRATIVE: CASE EVENT DATE: 20191010
